FAERS Safety Report 9492686 (Version 1)
Quarter: 2013Q3

REPORT INFORMATION
  Report Type: Spontaneous
  Country: US (occurrence: US)
  Receive Date: 20130830
  Receipt Date: 20130830
  Transmission Date: 20140515
  Serious: Yes (Hospitalization)
  Sender: FDA-Public Use
  Company Number: US-ELI_LILLY_AND_COMPANY-US201308005029

PATIENT
  Sex: Female

DRUGS (25)
  1. CYMBALTA [Suspect]
     Indication: ARTHRITIS
     Dosage: 30 MG, QD
     Route: 065
     Dates: start: 2011
  2. CYMBALTA [Suspect]
     Indication: DIABETIC NEUROPATHY
     Dosage: 60 MG, QD
     Route: 065
  3. CYMBALTA [Suspect]
     Indication: DEPRESSION
  4. LEFLUNOMIDE [Concomitant]
     Dosage: 20 MG, UNKNOWN
     Route: 065
  5. NEURONTIN [Concomitant]
     Dosage: 600 MG, TID
     Route: 065
  6. LASIX                              /00032601/ [Concomitant]
     Dosage: 80 MG, UNKNOWN
     Route: 065
  7. LISINOPRIL [Concomitant]
     Dosage: 40 MG, EACH EVENING
     Route: 065
  8. METOPROLOL [Concomitant]
     Dosage: 50 MG, EACH MORNING
     Route: 065
  9. JANTOVEN [Concomitant]
     Dosage: 7.5 MG, EACH EVENING
     Route: 065
  10. PRAVASTATIN [Concomitant]
     Dosage: 40 MG, EACH EVENING
     Route: 065
  11. COSAMIN [Concomitant]
     Dosage: 600 MG, BID
     Route: 065
  12. ENDURACIN [Concomitant]
     Dosage: 1000 MG, UNKNOWN
     Route: 065
  13. OMEGA 3                            /01334101/ [Concomitant]
     Dosage: 100 MG, UNKNOWN
     Route: 065
  14. SPIRONOLACTONE [Concomitant]
     Dosage: 25 MG, UNKNOWN
     Route: 065
  15. ASPIRIN [Concomitant]
     Dosage: 81 MG, UNKNOWN
     Route: 065
  16. SYMBICORT [Concomitant]
     Dosage: UNK, BID
     Route: 065
  17. SINGULAIR [Concomitant]
     Dosage: 10 MG, UNKNOWN
     Route: 065
  18. NEXIUM                             /01479302/ [Concomitant]
     Dosage: 40 MG, UNKNOWN
     Route: 065
  19. HYDROXYZINE [Concomitant]
     Dosage: 25 MG, PRN
     Route: 065
  20. LORATADINE [Concomitant]
     Dosage: 20 MG, UNKNOWN
     Route: 065
  21. LANTUS [Concomitant]
     Dosage: 52 IU, EACH EVENING
     Route: 065
  22. HYDROCODONE [Concomitant]
     Dosage: UNK, QID
     Route: 065
  23. CARISOPRODOL [Concomitant]
     Dosage: UNK, TID
     Route: 065
  24. VITAMIN D                          /00107901/ [Concomitant]
     Dosage: 3000 MG, UNKNOWN
     Route: 065
  25. HUMALOG N [Concomitant]
     Dosage: 25 MG, OTHER
     Route: 065

REACTIONS (2)
  - Pulmonary embolism [Unknown]
  - Drug ineffective [Unknown]
